FAERS Safety Report 21880827 (Version 1)
Quarter: 2023Q1

REPORT INFORMATION
  Report Type: Report from Study
  Country: US (occurrence: US)
  Receive Date: 20230118
  Receipt Date: 20230118
  Transmission Date: 20230418
  Serious: No
  Sender: FDA-Public Use
  Company Number: US-ABBVIE-4274622

PATIENT
  Sex: Male
  Weight: 74.389 kg

DRUGS (15)
  1. VENCLEXTA [Suspect]
     Active Substance: VENETOCLAX
     Indication: Chronic lymphocytic leukaemia
     Dosage: ALMOST TWO YEARS AGO
     Route: 048
     Dates: start: 2021, end: 20230114
  2. TOBRADEX [Concomitant]
     Active Substance: DEXAMETHASONE\TOBRAMYCIN
     Indication: Product used for unknown indication
     Dosage: 0.3-0-0.1% SUSPENSION
     Route: 047
     Dates: start: 20211209
  3. Magnesium 250MG [Concomitant]
     Indication: Product used for unknown indication
     Dosage: 1 TABLET BY MOUTH AT BEDTIME
     Route: 048
  4. XALATAN [Concomitant]
     Active Substance: LATANOPROST
     Indication: Product used for unknown indication
     Dosage: 0.005 %  SOLUTION ?1 DROP INTO BOTH EYES AT BEDTIME
     Route: 047
     Dates: start: 20210622
  5. GAS-X-ORAL [Concomitant]
     Indication: Flatulence
     Dosage: TAKE 1 TABLET BY MOUTH AT BEDTIME AS NEEDED
     Route: 048
  6. SINEMET [Concomitant]
     Active Substance: CARBIDOPA\LEVODOPA
     Indication: Product used for unknown indication
     Dosage: 25-250MG PER TABLET ( 7AM:2 TAB, 10AM,2 TAB, 1PM : 2 TAB, 4PM: 2 TAB, 7PM: 2 TABS 10 PM 2 TAB?2-3...
  7. ZOVIRAX 400MG [Concomitant]
     Indication: Product used for unknown indication
     Dosage: TAKE 1 TABLET 400 MG BY MOUTH 2 TIMES A DAY
     Route: 048
     Dates: start: 20220308
  8. ALREX [Concomitant]
     Active Substance: LOTEPREDNOL ETABONATE
     Indication: Product used for unknown indication
     Dosage: 0.2 % SUSPENSION 1 DROP INTO BOTH EYES DAILY
     Route: 047
  9. RESTASIS [Concomitant]
     Active Substance: CYCLOSPORINE
     Indication: Product used for unknown indication
     Dosage: 0.05% EMULSION; 1 DROP INTO BOTH EYES 2 TIMES A DAY
     Route: 047
  10. Vitamin D3 10MG [Concomitant]
     Indication: Product used for unknown indication
     Dosage: TAKE 400 UNITS BY MOUTH DAILY ; 10 MCG (400 UNIT) CAPSULE
     Route: 048
  11. REQUIP 3MG [Concomitant]
     Indication: Product used for unknown indication
     Dosage: TAKE 3 MG BY MOUTH 2 TIMES A DAY 10 AM AND 10 PM
     Route: 048
  12. MIRALAX [Concomitant]
     Active Substance: POLYETHYLENE GLYCOL 3350
     Indication: Product used for unknown indication
     Dosage: 17G 2 TIMES A DAY
     Dates: start: 20200201
  13. DESYREL 50MG [Concomitant]
     Indication: Product used for unknown indication
     Dosage: TAKE 50MG BY MOUTH AT BEDTIME
     Route: 048
  14. BACTRIM SEPTRA [Concomitant]
     Indication: Product used for unknown indication
     Dosage: 400-80 MG PER TABLET
     Route: 048
     Dates: start: 20220308
  15. NORVASC [Concomitant]
     Active Substance: AMLODIPINE BESYLATE
     Indication: Product used for unknown indication
     Route: 048
     Dates: start: 20210803

REACTIONS (1)
  - COVID-19 [Not Recovered/Not Resolved]
